FAERS Safety Report 18044850 (Version 1)
Quarter: 2020Q3

REPORT INFORMATION
  Report Type: Spontaneous
  Country: LV (occurrence: LV)
  Receive Date: 20200720
  Receipt Date: 20200720
  Transmission Date: 20201103
  Serious: Yes (Other)
  Sender: FDA-Public Use
  Company Number: LV-PFIZER INC-2020274622

PATIENT
  Age: 78 Year
  Sex: Female

DRUGS (4)
  1. VIGANTOL OIL [Concomitant]
     Indication: VITAMIN SUPPLEMENTATION
     Dosage: 10 DROP, 1X/DAY
     Route: 048
     Dates: start: 2020
  2. SORTIS [Suspect]
     Active Substance: ATORVASTATIN
     Indication: HYPERCHOLESTEROLAEMIA
     Dosage: 20 MG, 1X/DAY
     Route: 048
     Dates: start: 20200519, end: 20200529
  3. ATACAND PLUS [Suspect]
     Active Substance: CANDESARTAN CILEXETIL\HYDROCHLOROTHIAZIDE
     Indication: HYPERTENSION
     Dosage: [CANDESARTAN CILEXETIL 16 MG] / [HYDROCHLOROTHIAZIDE 12.5] 1/2 TABLET ONCE A DAY
     Route: 048
     Dates: start: 20200519, end: 20200529
  4. HJERTEMAGNYL [ACETYLSALICYLIC ACID;MAGNESIUM HYDROXIDE] [Concomitant]
     Indication: HYPERTENSION
     Dosage: [ACETYLSALICYLIC ACID 75 MG]/ [ MAGNESIUM HYDROXIDE 10.5 MG] , 1X/DAY
     Route: 048
     Dates: start: 2018

REACTIONS (2)
  - Oedema peripheral [Recovered/Resolved]
  - Face oedema [Recovered/Resolved]

NARRATIVE: CASE EVENT DATE: 20200529
